FAERS Safety Report 15469844 (Version 1)
Quarter: 2018Q4

REPORT INFORMATION
  Report Type: Spontaneous
  Country: AU (occurrence: AU)
  Receive Date: 20181005
  Receipt Date: 20181005
  Transmission Date: 20190205
  Serious: Yes (Other)
  Sender: FDA-Public Use
  Company Number: AU-TOLMAR, INC.-2018AU009757

PATIENT

DRUGS (11)
  1. LIPITOR [Concomitant]
     Active Substance: ATORVASTATIN CALCIUM
  2. NORSPAN [Concomitant]
     Active Substance: BUPRENORPHINE
  3. LYRICA [Concomitant]
     Active Substance: PREGABALIN
     Dosage: UNK,UNK
     Route: 065
  4. PROGOUT [Concomitant]
     Active Substance: ALLOPURINOL
     Dosage: UNK,UNK
     Route: 065
  5. MICARDIS [Concomitant]
     Active Substance: TELMISARTAN
     Dosage: UNK,UNK
     Route: 065
  6. PLAQUENIL                          /00072602/ [Concomitant]
     Active Substance: HYDROXYCHLOROQUINE DIPHOSPHATE
     Dosage: UNK,UNK
     Route: 065
  7. ELIGARD [Suspect]
     Active Substance: LEUPROLIDE ACETATE
     Indication: PROSTATE CANCER
     Dosage: UNK,UNK
     Route: 065
  8. ENZALUTAMIDE [Suspect]
     Active Substance: ENZALUTAMIDE
     Indication: PROSTATE CANCER
     Dosage: 160 MG, DAILY
     Route: 065
     Dates: start: 201701, end: 201805
  9. SPIRONOLACTONE. [Concomitant]
     Active Substance: SPIRONOLACTONE
     Dosage: UNK,UNK
     Route: 065
  10. ZOLOFT [Concomitant]
     Active Substance: SERTRALINE HYDROCHLORIDE
     Dosage: UNK,UNK
     Route: 065
  11. SLOW K [Concomitant]
     Active Substance: POTASSIUM CHLORIDE

REACTIONS (3)
  - Musculoskeletal pain [Unknown]
  - Prostatic specific antigen increased [Unknown]
  - Malignant neoplasm progression [Unknown]
